FAERS Safety Report 5591658-2 (Version None)
Quarter: 2008Q1

REPORT INFORMATION
  Report Type: 
  Country: None (occurrence: None)
  Receive Date: 20080115
  Receipt Date: 20080102
  Transmission Date: 20080703
  Serious: Yes (Hospitalization)
  Sender: FDA-Public Use
  Company Number: US-ELI_LILLY_AND_COMPANY-US200710001837

PATIENT
  Sex: Male

DRUGS (3)
  1. CIALIS [Suspect]
     Indication: ERECTILE DYSFUNCTION
     Dosage: 10 MG, AS NEEDED
     Dates: end: 20071101
  2. CIALIS [Suspect]
     Dosage: 20 MG, UNK
     Dates: start: 20071101
  3. LEVBID [Concomitant]
     Indication: IRRITABLE BOWEL SYNDROME
     Dosage: UNK, AS NEEDED

REACTIONS (5)
  - HEADACHE [None]
  - NASAL CONGESTION [None]
  - NECK PAIN [None]
  - TENOTOMY [None]
  - THERAPEUTIC RESPONSE DECREASED [None]
